FAERS Safety Report 20974577 (Version 1)
Quarter: 2022Q2

REPORT INFORMATION
  Report Type: 
  Country: GB (occurrence: GB)
  Receive Date: 20220617
  Receipt Date: 20220617
  Transmission Date: 20220721
  Serious: Yes (Other)
  Sender: FDA-Public Use
  Company Number: GB-SYNTHON BV-IN51PV22_64682

PATIENT
  Age: 53 Year
  Sex: Male
  Weight: 85 kg

DRUGS (2)
  1. TAMSULOSIN [Suspect]
     Active Substance: TAMSULOSIN
     Indication: Prostatomegaly
     Dosage: 400 MICROGRAM
     Route: 002
     Dates: start: 20220601, end: 20220605
  2. LOSARTAN [Concomitant]
     Active Substance: LOSARTAN
     Dosage: UNK

REACTIONS (5)
  - Diarrhoea [Unknown]
  - Lethargy [Unknown]
  - Nausea [Unknown]
  - Syncope [Recovering/Resolving]
  - Diarrhoea [Recovering/Resolving]

NARRATIVE: CASE EVENT DATE: 20220603
